FAERS Safety Report 17189280 (Version 2)
Quarter: 2020Q1

REPORT INFORMATION
  Report Type: Spontaneous
  Country: DE (occurrence: DE)
  Receive Date: 20191223
  Receipt Date: 20200106
  Transmission Date: 20200409
  Serious: Yes (Death)
  Sender: FDA-Public Use
  Company Number: DE-PFIZER INC-2019551463

PATIENT
  Age: 58 Year
  Sex: Male

DRUGS (9)
  1. CYTARABINE. [Suspect]
     Active Substance: CYTARABINE
     Indication: PREMEDICATION
     Dosage: 760 MG, 1X/DAY
     Route: 042
     Dates: start: 20190914
  2. MELPHALAN. [Suspect]
     Active Substance: MELPHALAN
     Indication: PREMEDICATION
     Dosage: 260 MG, 1X/DAY
     Route: 042
     Dates: start: 20190918
  3. BISOPROLOL [Concomitant]
     Active Substance: BISOPROLOL
     Indication: PREMEDICATION
     Dosage: 2.5 MG, Q12H (2.5 MG, BID)
     Route: 048
  4. ATORVASTATIN [Concomitant]
     Active Substance: ATORVASTATIN
     Indication: PREMEDICATION
     Dosage: 21.65 MG, QD
     Route: 048
  5. PLERIXAFOR [Suspect]
     Active Substance: PLERIXAFOR
     Indication: NON-HODGKIN^S LYMPHOMA
     Dosage: UNK UNK, 1X/DAY
     Route: 058
     Dates: start: 20190720
  6. THIOTEPA. [Suspect]
     Active Substance: THIOTEPA
     Indication: PREMEDICATION
     Dosage: 560 MG, 1X/DAY
     Route: 042
     Dates: start: 20190913
  7. VALSARTAN. [Concomitant]
     Active Substance: VALSARTAN
     Indication: PREMEDICATION
     Dosage: 160 MG, Q12H (160 MG, BID)
     Route: 048
  8. METHOTREXATE SODIUM. [Suspect]
     Active Substance: METHOTREXATE SODIUM
     Indication: PREMEDICATION
     Dosage: 760 MG, 1X/DAY
     Route: 042
     Dates: start: 20190914
  9. ETOPOSIDE. [Suspect]
     Active Substance: ETOPOSIDE
     Indication: PREMEDICATION
     Dosage: 280 MG, QD
     Route: 042
     Dates: start: 20190914

REACTIONS (2)
  - Multiple organ dysfunction syndrome [Fatal]
  - Neutropenic sepsis [Fatal]

NARRATIVE: CASE EVENT DATE: 20190920
